FAERS Safety Report 21152268 (Version 1)
Quarter: 2022Q3

REPORT INFORMATION
  Report Type: Spontaneous
  Country: US (occurrence: US)
  Receive Date: 20220730
  Receipt Date: 20220730
  Transmission Date: 20221026
  Serious: No
  Sender: FDA-Public Use
  Company Number: US-SA-SAC20220723000127

PATIENT
  Age: 33 Year
  Sex: Female
  Weight: 45.81 kg

DRUGS (1)
  1. CAPRELSA [Suspect]
     Active Substance: VANDETANIB
     Indication: Thyroid neoplasm
     Dosage: 200 MG, QD
     Route: 048
     Dates: start: 20140301

REACTIONS (2)
  - Norovirus infection [Unknown]
  - Acne [Unknown]

NARRATIVE: CASE EVENT DATE: 20170424
